FAERS Safety Report 4914098-5 (Version None)
Quarter: 2006Q1

REPORT INFORMATION
  Report Type: 
  Country: None (occurrence: None)
  Receive Date: 20060213
  Receipt Date: 20060202
  Transmission Date: 20060701
  Serious: Yes (Hospitalization)
  Sender: FDA-Public Use
  Company Number: 200510736BYL

PATIENT
  Age: 42 Year
  Sex: Female

DRUGS (1)
  1. AVELOX [Suspect]
     Indication: UPPER RESPIRATORY TRACT INFLAMMATION
     Dosage: 400 MG, QD, ORAL
     Route: 048
     Dates: start: 20051227

REACTIONS (8)
  - CONVERSION DISORDER [None]
  - DYSPNOEA [None]
  - FACE OEDEMA [None]
  - FLUSHING [None]
  - HYPERSENSITIVITY [None]
  - HYPERVENTILATION [None]
  - OCULAR HYPERAEMIA [None]
  - URTICARIA [None]
